FAERS Safety Report 23318361 (Version 7)
Quarter: 2024Q1

REPORT INFORMATION
  Report Type: Spontaneous
  Country: US (occurrence: US)
  Receive Date: 20231220
  Receipt Date: 20240301
  Transmission Date: 20240409
  Serious: Yes (Other)
  Sender: FDA-Public Use
  Company Number: US-UNITED THERAPEUTICS-UNT-2023-036186

PATIENT
  Age: 64 Year
  Sex: Female
  Weight: 104.76 kg

DRUGS (21)
  1. REMODULIN [Suspect]
     Active Substance: TREPROSTINIL
     Indication: Pulmonary arterial hypertension
     Dosage: 0.013 ?G/KG (SELF FILL WITH 1.7 ML/CASSETTE, RATE OF 17 MCL/HR), CONTINUING
     Route: 058
     Dates: start: 202312
  2. REMODULIN [Suspect]
     Active Substance: TREPROSTINIL
     Dosage: 0.016 ?G/KG (SELF-FILL WITH 2 ML/CASSETTE; RATE 21 MCL/HR), CONTINUING
     Route: 058
     Dates: start: 202312
  3. REMODULIN [Suspect]
     Active Substance: TREPROSTINIL
     Dosage: 0.028 ?G/KG (SELF-FILL WITH 3 ML/CASSETTE; RATE 37 MCL/HR), CONTINUING
     Route: 058
     Dates: start: 202312
  4. REMODULIN [Suspect]
     Active Substance: TREPROSTINIL
     Dosage: UNK, CONTINUING
     Route: 058
     Dates: start: 20231211
  5. LEVOTHYROXINE SODIUM [Concomitant]
     Active Substance: LEVOTHYROXINE SODIUM
     Indication: Product used for unknown indication
     Dosage: UNK
     Route: 065
  6. SULFAMETHOXAZOLE AND TRIMETHOPRIM [Concomitant]
     Active Substance: SULFAMETHOXAZOLE\TRIMETHOPRIM
     Indication: Product used for unknown indication
     Dosage: UNK
     Route: 065
  7. MYCOPHENOLATE MOFETIL [Concomitant]
     Active Substance: MYCOPHENOLATE MOFETIL
     Indication: Product used for unknown indication
     Dosage: UNK
     Route: 065
  8. FIORICET [Concomitant]
     Active Substance: ACETAMINOPHEN\BUTALBITAL\CAFFEINE
     Indication: Product used for unknown indication
     Dosage: UNK
     Route: 065
  9. MAGNESIUM [Concomitant]
     Active Substance: MAGNESIUM
     Indication: Product used for unknown indication
     Dosage: UNK
     Route: 065
  10. SODIUM CHLORIDE [Concomitant]
     Active Substance: SODIUM CHLORIDE
     Indication: Product used for unknown indication
     Dosage: UNK
     Route: 065
  11. SERTRALINE HYDROCHLORIDE [Concomitant]
     Active Substance: SERTRALINE HYDROCHLORIDE
     Indication: Product used for unknown indication
     Dosage: UNK
     Route: 065
  12. LOSARTAN POTASSIUM [Concomitant]
     Active Substance: LOSARTAN POTASSIUM
     Indication: Product used for unknown indication
     Dosage: UNK
     Route: 065
  13. AMLODIPINE BESYLATE [Concomitant]
     Active Substance: AMLODIPINE BESYLATE
     Indication: Product used for unknown indication
     Dosage: UNK
     Route: 065
  14. PANTOPRAZOLE SODIUM [Concomitant]
     Active Substance: PANTOPRAZOLE SODIUM
     Indication: Product used for unknown indication
     Dosage: UNK
     Route: 065
  15. VITAMIN D3 [Concomitant]
     Active Substance: CHOLECALCIFEROL
     Indication: Product used for unknown indication
     Dosage: UNK
     Route: 065
  16. VITAMIN D2 [Concomitant]
     Active Substance: ERGOCALCIFEROL
     Indication: Product used for unknown indication
     Dosage: UNK
     Route: 065
  17. METOPROLOL SUCCINATE [Concomitant]
     Active Substance: METOPROLOL SUCCINATE
     Indication: Product used for unknown indication
     Dosage: UNK
     Route: 065
  18. VITAMINS [Concomitant]
     Active Substance: VITAMINS
     Indication: Product used for unknown indication
     Dosage: UNK
     Route: 065
  19. SPIRIVA RESPIMAT [Concomitant]
     Active Substance: TIOTROPIUM BROMIDE
     Indication: Product used for unknown indication
     Dosage: UNK
     Route: 065
  20. OXYGEN [Concomitant]
     Active Substance: OXYGEN
     Indication: Product used for unknown indication
     Dosage: UNK
     Route: 065
  21. CALCIUM [Concomitant]
     Active Substance: CALCIUM
     Indication: Product used for unknown indication
     Dosage: UNK
     Route: 065

REACTIONS (16)
  - Syncope [Not Recovered/Not Resolved]
  - Loss of consciousness [Unknown]
  - Hypoxia [Unknown]
  - Nausea [Not Recovered/Not Resolved]
  - Infusion site pain [Not Recovered/Not Resolved]
  - Dizziness [Recovering/Resolving]
  - Infusion site haemorrhage [Unknown]
  - Device power source issue [Recovered/Resolved]
  - Device power source issue [Recovered/Resolved]
  - Device infusion issue [Not Recovered/Not Resolved]
  - Device failure [Recovered/Resolved]
  - Device dislocation [Recovered/Resolved]
  - Device use error [Unknown]
  - Device issue [Unknown]
  - Device failure [Not Recovered/Not Resolved]
  - Patient dissatisfaction with device [Unknown]

NARRATIVE: CASE EVENT DATE: 20231201
